FAERS Safety Report 7981555-7 (Version None)
Quarter: 2011Q4

REPORT INFORMATION
  Report Type: 
  Country: None (occurrence: None)
  Receive Date: 20111215
  Receipt Date: 20111213
  Transmission Date: 20120403
  Serious: Yes (Other)
  Sender: FDA-Public Use
  Company Number: CO-PFIZER INC-2011297626

PATIENT
  Age: 53 Year
  Sex: Male

DRUGS (9)
  1. NEURONTIN [Suspect]
     Indication: DIABETIC NEUROPATHY
     Dosage: 300 MG, 3X/DAY
     Route: 048
     Dates: start: 20060101
  2. INSULIN GLARGINE [Concomitant]
     Indication: DIABETES MELLITUS
     Dosage: UNK
  3. LOVASTATIN [Concomitant]
     Indication: BLOOD CHOLESTEROL INCREASED
     Dosage: UNK
  4. LOVASTATIN [Concomitant]
     Indication: BLOOD TRIGLYCERIDES INCREASED
  5. BISACODYL [Concomitant]
     Indication: CONSTIPATION
     Dosage: UNK
  6. INSULIN ZINC SUSPENSION (CRYSTALLINE) [Concomitant]
     Indication: DIABETES MELLITUS
     Dosage: UNK
  7. ASPIRIN [Concomitant]
     Indication: ANTICOAGULANT THERAPY
     Dosage: 100MG
  8. METOPROLOL [Concomitant]
     Indication: HYPERTENSION
     Dosage: 50 MG
  9. LOSARTAN [Concomitant]
     Indication: HYPERTENSION
     Dosage: 50 MG

REACTIONS (3)
  - LIMB INJURY [None]
  - AMPUTATION [None]
  - RENAL TRANSPLANT [None]
